FAERS Safety Report 11646111 (Version 1)
Quarter: 2015Q4

REPORT INFORMATION
  Report Type: Spontaneous
  Country: US (occurrence: US)
  Receive Date: 20151020
  Receipt Date: 20151020
  Transmission Date: 20160304
  Serious: No
  Sender: FDA-Public Use
  Company Number: US-ROCHE-ITM201502IM009713

PATIENT
  Age: 81 Year
  Sex: Male

DRUGS (5)
  1. ESBRIET [Suspect]
     Active Substance: PIRFENIDONE
     Route: 048
     Dates: start: 20150202
  2. ESBRIET [Suspect]
     Active Substance: PIRFENIDONE
     Route: 048
     Dates: start: 20150206
  3. ASPIRIN. [Concomitant]
     Active Substance: ASPIRIN
  4. TUMS [Concomitant]
     Active Substance: CALCIUM CARBONATE
  5. ESBRIET [Suspect]
     Active Substance: PIRFENIDONE
     Indication: IDIOPATHIC PULMONARY FIBROSIS
     Route: 048
     Dates: start: 20141231

REACTIONS (10)
  - Blood pressure decreased [Not Recovered/Not Resolved]
  - Dyspepsia [Recovered/Resolved]
  - Dyspnoea [Not Recovered/Not Resolved]
  - Weight decreased [Unknown]
  - Diarrhoea [Unknown]
  - Blood glucose decreased [Not Recovered/Not Resolved]
  - Photosensitivity reaction [Unknown]
  - Constipation [Not Recovered/Not Resolved]
  - Eructation [Recovered/Resolved]
  - Gastrooesophageal reflux disease [Unknown]

NARRATIVE: CASE EVENT DATE: 201501
